FAERS Safety Report 16767277 (Version 1)
Quarter: 2019Q3

REPORT INFORMATION
  Report Type: Spontaneous
  Country: US (occurrence: US)
  Receive Date: 20190715
  Receipt Date: 20190715
  Transmission Date: 20191005
  Serious: No
  Sender: FDA-Public Use
  Company Number: None

PATIENT
  Age: 63 Year
  Sex: Female

DRUGS (3)
  1. AFINITOR [Suspect]
     Active Substance: EVEROLIMUS
     Dates: start: 20190416, end: 20190715
  2. METOPROLOL/HCTZ [Concomitant]
     Active Substance: HYDROCHLOROTHIAZIDE\METOPROLOL
  3. ELIQUIS [Concomitant]
     Active Substance: APIXABAN

REACTIONS (2)
  - Migraine [None]
  - Disease progression [None]

NARRATIVE: CASE EVENT DATE: 20190715
